FAERS Safety Report 15897203 (Version 1)
Quarter: 2019Q1

REPORT INFORMATION
  Report Type: Spontaneous
  Country: JP (occurrence: JP)
  Receive Date: 20190131
  Receipt Date: 20190131
  Transmission Date: 20190417
  Serious: Yes (Hospitalization, Other)
  Sender: FDA-Public Use
  Company Number: JP-UNICHEM PHARMACEUTICALS (USA) INC-UCM201901-000037

PATIENT
  Age: 13 Year
  Sex: Male
  Weight: 75 kg

DRUGS (15)
  1. LAMOTRIGINE. [Suspect]
     Active Substance: LAMOTRIGINE
  2. DIVALPROEX SODIUM. [Suspect]
     Active Substance: DIVALPROEX SODIUM
  3. CLONAZEPAM. [Concomitant]
     Active Substance: CLONAZEPAM
     Dosage: UNKNOWN
  4. RISPERIDONE. [Concomitant]
     Active Substance: RISPERIDONE
     Indication: AGITATION
  5. LAMOTRIGINE. [Suspect]
     Active Substance: LAMOTRIGINE
  6. LAMOTRIGINE. [Suspect]
     Active Substance: LAMOTRIGINE
  7. LAMOTRIGINE. [Suspect]
     Active Substance: LAMOTRIGINE
  8. LAMOTRIGINE. [Suspect]
     Active Substance: LAMOTRIGINE
  9. LAMOTRIGINE. [Suspect]
     Active Substance: LAMOTRIGINE
  10. LAMOTRIGINE. [Suspect]
     Active Substance: LAMOTRIGINE
  11. DIVALPROEX SODIUM. [Suspect]
     Active Substance: DIVALPROEX SODIUM
     Indication: EPILEPSY
  12. LAMOTRIGINE. [Suspect]
     Active Substance: LAMOTRIGINE
     Indication: EPILEPSY
  13. LAMOTRIGINE. [Suspect]
     Active Substance: LAMOTRIGINE
  14. DIVALPROEX SODIUM. [Suspect]
     Active Substance: DIVALPROEX SODIUM
  15. CLONAZEPAM. [Concomitant]
     Active Substance: CLONAZEPAM
     Indication: EPILEPSY

REACTIONS (3)
  - Hyponatraemia [Recovered/Resolved]
  - Inappropriate antidiuretic hormone secretion [Recovered/Resolved]
  - Increased appetite [Unknown]
